FAERS Safety Report 5877120-8 (Version None)
Quarter: 2008Q3

REPORT INFORMATION
  Report Type: 
  Country: None (occurrence: None)
  Receive Date: 20080908
  Receipt Date: 20080908
  Transmission Date: 20090109
  Serious: Yes (Life-Threatening, Other)
  Sender: FDA-Public Use
  Company Number: None

PATIENT
  Age: 61 Year
  Sex: Female
  Weight: 114.3065 kg

DRUGS (2)
  1. THYROID TAB [Suspect]
     Indication: THYROID THERAPY
     Dosage: 1 TABLET 2X DAY PO
     Route: 048
     Dates: start: 20080722, end: 20080810
  2. THYROID TAB [Suspect]
     Indication: THYROIDECTOMY
     Dosage: 1 TABLET 2X DAY PO
     Route: 048
     Dates: start: 20080722, end: 20080810

REACTIONS (14)
  - ASTHENIA [None]
  - BLOOD DISORDER [None]
  - BLOOD PRESSURE DIASTOLIC DECREASED [None]
  - CHILLS [None]
  - FATIGUE [None]
  - HYPERHIDROSIS [None]
  - INJURY [None]
  - LYMPHADENOPATHY [None]
  - PAIN [None]
  - PHARMACEUTICAL PRODUCT COMPLAINT [None]
  - PYREXIA [None]
  - RETCHING [None]
  - SOMNOLENCE [None]
  - WHITE BLOOD CELL COUNT INCREASED [None]
